FAERS Safety Report 9030266 (Version 1)
Quarter: 2013Q1

REPORT INFORMATION
  Report Type: Report from Study
  Country: GB (occurrence: GB)
  Receive Date: 20130122
  Receipt Date: 20130122
  Transmission Date: 20140127
  Serious: Yes (Death)
  Sender: FDA-Public Use
  Company Number: GB-ROCHE-1178489

PATIENT
  Sex: Female

DRUGS (2)
  1. RITUXIMAB [Suspect]
     Indication: RHEUMATOID ARTHRITIS
     Route: 065
     Dates: start: 20080626
  2. METHOTREXATE [Concomitant]
     Route: 065
     Dates: start: 20080205

REACTIONS (3)
  - Left ventricular failure [Fatal]
  - Myocardial ischaemia [Fatal]
  - Hypertension [Fatal]
